FAERS Safety Report 12805020 (Version 2)
Quarter: 2016Q4

REPORT INFORMATION
  Report Type: Spontaneous
  Country: JP (occurrence: JP)
  Receive Date: 20161004
  Receipt Date: 20161026
  Transmission Date: 20170207
  Serious: Yes (Other)
  Sender: FDA-Public Use
  Company Number: JP-009507513-1609JPN014216

PATIENT
  Age: 34 Year
  Sex: Female

DRUGS (3)
  1. MUCOSOLVAN [Concomitant]
     Active Substance: AMBROXOL HYDROCHLORIDE
     Dosage: DAILY DOSE UNKNOWN
     Route: 065
  2. SINGULAIR [Suspect]
     Active Substance: MONTELUKAST SODIUM
     Indication: ASTHMA
     Dosage: 10 MG, QD
     Route: 048
     Dates: start: 201607
  3. ADOAIR [Suspect]
     Active Substance: FLUTICASONE PROPIONATE\SALMETEROL XINAFOATE
     Indication: ASTHMA
     Dosage: DAILY DOSAGE UNKNOWN
     Route: 055
     Dates: start: 2015

REACTIONS (2)
  - Maternal exposure during pregnancy [Unknown]
  - Abortion threatened [Unknown]

NARRATIVE: CASE EVENT DATE: 201609
